FAERS Safety Report 15421077 (Version 2)
Quarter: 2018Q3

REPORT INFORMATION
  Report Type: Report from Study
  Country: ES (occurrence: ES)
  Receive Date: 20180924
  Receipt Date: 20180927
  Transmission Date: 20181010
  Serious: Yes (Death, Other)
  Sender: FDA-Public Use
  Company Number: ES-BRISTOL-MYERS SQUIBB COMPANY-BMS-2018-088771

PATIENT
  Age: 62 Year
  Sex: Male
  Weight: 61.6 kg

DRUGS (2)
  1. NIVOLUMAB [Suspect]
     Active Substance: NIVOLUMAB
     Indication: NON-SMALL CELL LUNG CANCER RECURRENT
     Dosage: 3 MG/KG, ON DAY1 AND 15
     Route: 042
     Dates: start: 20171020
  2. GALUNISERTIB [Suspect]
     Active Substance: GALUNISERTIB
     Indication: NON-SMALL CELL LUNG CANCER RECURRENT
     Dosage: 150 MG, BID
     Route: 048
     Dates: start: 20171020

REACTIONS (1)
  - Loss of consciousness [Fatal]

NARRATIVE: CASE EVENT DATE: 20180915
